FAERS Safety Report 11527102 (Version 1)
Quarter: 2015Q3

REPORT INFORMATION
  Report Type: Spontaneous
  Country: US (occurrence: US)
  Receive Date: 20150903
  Receipt Date: 20150903
  Transmission Date: 20151125
  Serious: No
  Sender: FDA-Public Use
  Company Number: US-ELI_LILLY_AND_COMPANY-US200907002612

PATIENT
  Sex: Female

DRUGS (7)
  1. NOVOLOG [Concomitant]
     Active Substance: INSULIN ASPART
     Dates: start: 200703, end: 200710
  2. ACTOS [Concomitant]
     Active Substance: PIOGLITAZONE HYDROCHLORIDE
  3. ALBUTEROL. [Concomitant]
     Active Substance: ALBUTEROL
  4. PANTOPRAZOLE SODIUM. [Concomitant]
     Active Substance: PANTOPRAZOLE SODIUM
  5. HUMALOG [Suspect]
     Active Substance: INSULIN LISPRO
     Dates: start: 2005
  6. ADVAIR HFA [Concomitant]
     Active Substance: FLUTICASONE PROPIONATE\SALMETEROL XINAFOATE
  7. ZOLOFT [Concomitant]
     Active Substance: SERTRALINE HYDROCHLORIDE

REACTIONS (22)
  - Asthma [Not Recovered/Not Resolved]
  - Bronchitis chronic [Not Recovered/Not Resolved]
  - Stress [Not Recovered/Not Resolved]
  - Skin ulcer [Unknown]
  - Drug hypersensitivity [Unknown]
  - Wrong drug administered [Recovered/Resolved]
  - Gastrooesophageal reflux disease [Unknown]
  - Blood glucose increased [Not Recovered/Not Resolved]
  - Inflammation [Unknown]
  - Inflammation [Not Recovered/Not Resolved]
  - Diarrhoea [Unknown]
  - Blood glucose fluctuation [Unknown]
  - Pneumonia [Not Recovered/Not Resolved]
  - Urticaria [Unknown]
  - Wrong drug administered [Recovered/Resolved]
  - Skin disorder [Unknown]
  - Dyspnoea [Unknown]
  - Pleurisy [Not Recovered/Not Resolved]
  - Pain [Not Recovered/Not Resolved]
  - Erythema [Unknown]
  - Myositis [Not Recovered/Not Resolved]
  - Malaise [Not Recovered/Not Resolved]

NARRATIVE: CASE EVENT DATE: 200703
